FAERS Safety Report 19068000 (Version 1)
Quarter: 2021Q1

REPORT INFORMATION
  Report Type: Spontaneous
  Country: GB (occurrence: GB)
  Receive Date: 20210329
  Receipt Date: 20210329
  Transmission Date: 20210420
  Serious: Yes (Other)
  Sender: FDA-Public Use
  Company Number: GB-AUROBINDO-AUR-APL-2021-012521

PATIENT
  Age: 6 Year
  Sex: Female
  Weight: 16 kg

DRUGS (4)
  1. FLUTICASONE. [Concomitant]
     Active Substance: FLUTICASONE
     Indication: PRODUCT USED FOR UNKNOWN INDICATION
     Dosage: 2 DOSAGE FORM, TWO TIMES A DAY
     Route: 055
     Dates: start: 20190912
  2. SALBUTAMOL [Concomitant]
     Active Substance: ALBUTEROL
     Indication: PRODUCT USED FOR UNKNOWN INDICATION
     Dosage: 2 DOSAGE FORM, AS NECESSARY
     Route: 055
     Dates: start: 20190912
  3. MONTELUKAST CHEWABLE TABLET [Suspect]
     Active Substance: MONTELUKAST SODIUM
     Indication: PRODUCT USED FOR UNKNOWN INDICATION
     Dosage: 5 MILLIGRAM
     Route: 065
     Dates: end: 202009
  4. CETRABEN [Concomitant]
     Indication: PRODUCT USED FOR UNKNOWN INDICATION
     Dosage: UNK, AS NECESSARY (AT SCHOOL)
     Route: 065
     Dates: start: 20201012

REACTIONS (7)
  - Hallucinations, mixed [Recovering/Resolving]
  - Aggression [Recovering/Resolving]
  - Intentional self-injury [Recovering/Resolving]
  - Nausea [Recovering/Resolving]
  - Decreased appetite [Not Recovered/Not Resolved]
  - Anxiety [Not Recovered/Not Resolved]
  - Obsessive-compulsive disorder [Unknown]
